FAERS Safety Report 13132715 (Version 1)
Quarter: 2017Q1

REPORT INFORMATION
  Report Type: Report from Study
  Country: NL (occurrence: NL)
  Receive Date: 20170120
  Receipt Date: 20170120
  Transmission Date: 20170428
  Serious: Yes (Death, Hospitalization, Other)
  Sender: FDA-Public Use
  Company Number: NL-AMGEN-NLDSL2016168031

PATIENT
  Age: 86 Year
  Sex: Male

DRUGS (13)
  1. ATORVASTATIN [Concomitant]
     Active Substance: ATORVASTATIN
     Dosage: 10 MG, X 1
  2. ZOLADEX [Concomitant]
     Active Substance: GOSERELIN ACETATE
     Dosage: UNK X 1
  3. XGEVA [Suspect]
     Active Substance: DENOSUMAB
     Indication: PROPHYLAXIS
     Dosage: 120 MG (IN 1.70 ML), Q4WK 1 STUKS
     Route: 058
  4. XTANDI [Concomitant]
     Active Substance: ENZALUTAMIDE
     Dosage: 40 X 4
  5. FENPROCOUMON [Concomitant]
     Active Substance: PHENPROCOUMON
     Dosage: 3 MG, X VOLGENS SCHEMA
  6. AMLODIPINE [Concomitant]
     Active Substance: AMLODIPINE BESYLATE
     Dosage: 5 MG, X 2
  7. METOPROLOL SUCCINATE. [Concomitant]
     Active Substance: METOPROLOL SUCCINATE
     Dosage: 50 MG, X 1
  8. CALCI CHEW [Concomitant]
     Dosage: 500 MG, X 1
  9. BUMETANIDE. [Concomitant]
     Active Substance: BUMETANIDE
     Dosage: 2 MG, X 2
  10. XGEVA [Suspect]
     Active Substance: DENOSUMAB
     Dosage: UNK
     Route: 058
  11. PANTOPRAZOL [Concomitant]
     Active Substance: PANTOPRAZOLE SODIUM
     Dosage: 40 MG, X 1
  12. SPIRONOLACTON [Concomitant]
     Active Substance: SPIRONOLACTONE
     Dosage: 25 MG, X 1
  13. VALSARTAN. [Concomitant]
     Active Substance: VALSARTAN
     Dosage: 160 MG, X 1

REACTIONS (3)
  - Acute kidney injury [Fatal]
  - Nausea [Not Recovered/Not Resolved]
  - Angioplasty [Unknown]

NARRATIVE: CASE EVENT DATE: 20161030
